FAERS Safety Report 9190288 (Version 2)
Quarter: 2013Q2

REPORT INFORMATION
  Report Type: Spontaneous
  Country: JP (occurrence: None)
  Receive Date: 20130322
  Receipt Date: 20130426
  Transmission Date: 20140414
  Serious: Yes (Hospitalization)
  Sender: FDA-Public Use
  Company Number: JP-011184

PATIENT
  Age: 80 Year
  Sex: Male

DRUGS (7)
  1. GONAX [Suspect]
     Indication: PROSTATE CANCER
     Dosage: (240MG 1X SUBCUTANEOUS)
     Route: 058
     Dates: start: 20121217, end: 20121217
  2. NIFEDIPINE [Concomitant]
  3. PREMINENT [Concomitant]
  4. NOVORAPID [Concomitant]
  5. ASPIRIN [Concomitant]
  6. CHLORMADINONE ACETATE [Concomitant]
  7. ESTRACYT [Concomitant]

REACTIONS (2)
  - Hyperglycaemia [None]
  - Condition aggravated [None]
